FAERS Safety Report 5767868-8 (Version None)
Quarter: 2008Q2

REPORT INFORMATION
  Report Type: 
  Country: None (occurrence: None)
  Receive Date: 20080612
  Receipt Date: 20080523
  Transmission Date: 20081010
  Serious: Yes (Hospitalization)
  Sender: FDA-Public Use
  Company Number: AU-ROCHE-498722

PATIENT
  Sex: Female
  Weight: 65 kg

DRUGS (10)
  1. PEGASYS [Suspect]
     Dosage: DATE OF LAST DOSE PRIOR TO SAE: 01-MAY-2007
     Route: 058
     Dates: start: 20061205
  2. RIBAVIRIN [Suspect]
     Dosage: FREQUENCY DAILY.
     Route: 048
     Dates: start: 20061205
  3. RIBAVIRIN [Suspect]
     Dosage: DATE OF LAST DOSE PRIOR TO SAE: 05 DECEMBER 2007
     Route: 048
     Dates: start: 20070505
  4. MONOPRIL [Suspect]
     Indication: DRUG USE FOR UNKNOWN INDICATION
     Route: 065
  5. ZANTAC [Concomitant]
  6. VALPROATE SODIUM [Concomitant]
  7. NATURLIX [Concomitant]
     Dosage: DRUG NAME REPORTED AS NATURLIX SR
  8. SERETIDE [Concomitant]
     Dosage: DRUG NAME REPORTED AS SERETIDE 500/50 PUFFER.  DOSE REPORTED AS 1-2 TIMES PER WEEK.
  9. SERETIDE [Concomitant]
     Dosage: DRUG NAME REPORTED AS SERETIDE 500/50 PUFFER.  DOSE REPORTED AS 1-2 TIMES PER WEEK.
  10. GLUCOSAMINE HYDROCHLORIDE [Concomitant]

REACTIONS (1)
  - SYNCOPE [None]
